FAERS Safety Report 10997718 (Version 2)
Quarter: 2015Q2

REPORT INFORMATION
  Report Type: Spontaneous
  Country: GB (occurrence: GB)
  Receive Date: 20150408
  Receipt Date: 20150413
  Transmission Date: 20150821
  Serious: Yes (Hospitalization)
  Sender: FDA-Public Use
  Company Number: GB-PFIZER INC-2015117384

PATIENT
  Age: 90 Year
  Sex: Male

DRUGS (8)
  1. DONEPEZIL HCL [Suspect]
     Active Substance: DONEPEZIL HYDROCHLORIDE
     Dosage: 5 MG, 1X/DAY
     Route: 048
     Dates: start: 20130917, end: 20150310
  2. METOCLOPRAMIDE. [Suspect]
     Active Substance: METOCLOPRAMIDE
     Dosage: 10 MG, 1X/DAY
     Route: 048
     Dates: start: 20140520, end: 20150310
  3. TRAZODONE [Suspect]
     Active Substance: TRAZODONE HYDROCHLORIDE
     Dosage: 50 MG, 1X/DAY
     Route: 048
     Dates: start: 20130715, end: 20150310
  4. OMEPRAZOLE. [Concomitant]
     Active Substance: OMEPRAZOLE
     Dosage: UNK
  5. SIMVASTATIN. [Concomitant]
     Active Substance: SIMVASTATIN
     Dosage: UNK
  6. CLOPIDOGREL [Concomitant]
     Active Substance: CLOPIDOGREL BISULFATE
     Dosage: UNK
  7. CYANOCOBALAMIN. [Concomitant]
     Active Substance: CYANOCOBALAMIN
     Dosage: UNK
  8. RAMIPRIL. [Suspect]
     Active Substance: RAMIPRIL
     Dosage: 5 MG, 2X/DAY
     Route: 048
     Dates: start: 20041201, end: 20150310

REACTIONS (1)
  - Electrocardiogram QT prolonged [Recovering/Resolving]

NARRATIVE: CASE EVENT DATE: 20150310
